FAERS Safety Report 13552111 (Version 1)
Quarter: 2017Q2

REPORT INFORMATION
  Report Type: Spontaneous
  Country: US (occurrence: US)
  Receive Date: 20170516
  Receipt Date: 20170516
  Transmission Date: 20170830
  Serious: Yes (Hospitalization)
  Sender: FDA-Public Use
  Company Number: US-BEH-2017080357

PATIENT
  Age: 53 Year
  Sex: Male
  Weight: 58.96 kg

DRUGS (27)
  1. PROZAC [Concomitant]
     Active Substance: FLUOXETINE HYDROCHLORIDE
  2. SEROQUEL [Concomitant]
     Active Substance: QUETIAPINE FUMARATE
  3. FLOMAX [Concomitant]
     Active Substance: TAMSULOSIN HYDROCHLORIDE
  4. DIPHENHYDRAMINE. [Concomitant]
     Active Substance: DIPHENHYDRAMINE
  5. ZOFRAN [Concomitant]
     Active Substance: ONDANSETRON HYDROCHLORIDE
  6. NORCO [Concomitant]
     Active Substance: ACETAMINOPHEN\HYDROCODONE BITARTRATE
  7. PRIVIGEN [Suspect]
     Active Substance: HUMAN IMMUNOGLOBULIN G
     Indication: HYPOGAMMAGLOBULINAEMIA
     Dosage: 30G, QMT
     Route: 042
     Dates: start: 20160726
  8. ACETAMINOPHEN. [Concomitant]
     Active Substance: ACETAMINOPHEN
  9. LISINOPRIL. [Concomitant]
     Active Substance: LISINOPRIL
  10. THEOPHYLLINE [Concomitant]
     Active Substance: THEOPHYLLINE ANHYDROUS
  11. PERCOCET                           /00446701/ [Concomitant]
     Active Substance: ACETAMINOPHEN\OXYCODONE HYDROCHLORIDE\OXYCODONE TEREPHTHALATE
  12. ALBUTEROL SULFATE. [Concomitant]
     Active Substance: ALBUTEROL SULFATE
  13. OXYGEN. [Concomitant]
     Active Substance: OXYGEN
  14. DEPAKOTE [Concomitant]
     Active Substance: DIVALPROEX SODIUM
  15. PROTONIX [Concomitant]
     Active Substance: PANTOPRAZOLE SODIUM
  16. ASPIRIN. [Concomitant]
     Active Substance: ASPIRIN
  17. PULMICORT TURBUHALER [Concomitant]
     Active Substance: BUDESONIDE
  18. PREDNISONE. [Concomitant]
     Active Substance: PREDNISONE
  19. HEPARIN [Concomitant]
     Active Substance: HEPARIN SODIUM
  20. SODIUM CHLORIDE. [Concomitant]
     Active Substance: SODIUM CHLORIDE
  21. BUMETANIDE. [Concomitant]
     Active Substance: BUMETANIDE
  22. GABAPENTIN. [Concomitant]
     Active Substance: GABAPENTIN
  23. BROVANA [Concomitant]
     Active Substance: ARFORMOTEROL TARTRATE
  24. PRIVIGEN [Suspect]
     Active Substance: HUMAN IMMUNOGLOBULIN G
     Dosage: UNK
     Route: 042
  25. LIPITOR [Concomitant]
     Active Substance: ATORVASTATIN CALCIUM
  26. EPIPEN [Concomitant]
     Active Substance: EPINEPHRINE
  27. XANAX [Concomitant]
     Active Substance: ALPRAZOLAM

REACTIONS (8)
  - Surgery [Unknown]
  - Pain in extremity [Unknown]
  - Pneumonia [Unknown]
  - Arthralgia [Unknown]
  - Paralysis [Recovered/Resolved]
  - Sepsis [Unknown]
  - Staphylococcal infection [Unknown]
  - Confusional state [Unknown]

NARRATIVE: CASE EVENT DATE: 20170422
